FAERS Safety Report 9795923 (Version 3)
Quarter: 2014Q1

REPORT INFORMATION
  Report Type: Report from Study
  Country: US (occurrence: US)
  Receive Date: 20140103
  Receipt Date: 20140117
  Transmission Date: 20141002
  Serious: Yes (Life-Threatening, Hospitalization)
  Sender: FDA-Public Use
  Company Number: US-PFIZER INC-2013374026

PATIENT
  Age: 66 Year
  Sex: Female
  Weight: 69.84 kg

DRUGS (13)
  1. VENLAFAXINE HCL [Suspect]
     Indication: DEPRESSION
     Dosage: 37.5 MG, DAILY
     Route: 048
     Dates: start: 20131127, end: 20131129
  2. VENLAFAXINE HCL [Suspect]
     Dosage: 75 MG, DAILY
     Route: 048
     Dates: start: 20131130, end: 20131201
  3. VENLAFAXINE HCL [Suspect]
     Dosage: 112.5 MG, DAILY
     Route: 048
     Dates: start: 20131202, end: 20131204
  4. VENLAFAXINE HCL [Suspect]
     Dosage: 150 MG, DAILY
     Route: 048
     Dates: start: 20131205, end: 201312
  5. ALPRAZOLAM [Concomitant]
     Dosage: 0.5 MG, 3X/DAY
     Dates: start: 20081120, end: 20131212
  6. ALPRAZOLAM [Concomitant]
     Dosage: 0.5 MG, 4X/DAY (QID)
     Dates: start: 20131213, end: 20131219
  7. KLONOPIN [Concomitant]
     Indication: ANXIETY
     Dosage: 0.5 MG, 2X/DAY
     Route: 048
     Dates: start: 20131220, end: 201312
  8. KLONOPIN [Concomitant]
     Dosage: 0.5 MG, AS NEEDED (4 ADDITIONAL DOSES PRN (UP TO 6 TIMES/ DAY)
     Route: 048
     Dates: start: 201312
  9. LIORESAL [Concomitant]
     Indication: BACK PAIN
     Dosage: 10 MG, 3X/DAY
     Dates: start: 20130120
  10. VITAMIN D [Concomitant]
     Indication: VITAMIN D DEFICIENCY
     Dosage: 1000 IU, 1X/DAY
     Dates: start: 20131120
  11. PREMPRO [Concomitant]
     Indication: MENOPAUSAL SYMPTOMS
     Dosage: 1 DF (TAB), 1X/DAY
     Dates: start: 20081120
  12. METHADONE [Concomitant]
     Indication: BACK PAIN
     Dosage: 10 MG, 2X/DAY (Q12H)
     Dates: start: 20101120
  13. GABAPENTIN [Concomitant]
     Indication: FIBROMYALGIA
     Dosage: 600 MG, 2X/DAY
     Dates: start: 20101120

REACTIONS (1)
  - Suicide attempt [Recovered/Resolved]
